FAERS Safety Report 9733938 (Version 1)
Quarter: 2013Q4

REPORT INFORMATION
  Report Type: Spontaneous
  Country: US (occurrence: US)
  Receive Date: 20131205
  Receipt Date: 20131205
  Transmission Date: 20140711
  Serious: No
  Sender: FDA-Public Use
  Company Number: US-GE HEALTHCARE MEDICAL DIAGNOSTICS-OSCN-PR-1311S-0123

PATIENT
  Sex: 0

DRUGS (2)
  1. OMNISCAN [Suspect]
     Indication: PRODUCT USED FOR UNKNOWN INDICATION
     Route: 065
  2. OMNISCAN [Suspect]
     Indication: DIAGNOSTIC PROCEDURE

REACTIONS (2)
  - Accidental exposure to product [Unknown]
  - Adverse event [Unknown]
